FAERS Safety Report 4875171-3 (Version None)
Quarter: 2006Q1

REPORT INFORMATION
  Report Type: 
  Country: None (occurrence: None)
  Receive Date: 20060104
  Receipt Date: 20051223
  Transmission Date: 20060701
  Serious: Yes (Hospitalization, Other)
  Sender: FDA-Public Use
  Company Number: 2005163212

PATIENT
  Age: 58 Year
  Sex: Male
  Weight: 104.3273 kg

DRUGS (17)
  1. TIKOSYN [Suspect]
     Indication: VENTRICULAR TACHYCARDIA
     Dosage: 250 MCG (125 MCG, 2 IN 1 D), ORAL
     Route: 048
     Dates: start: 20050901
  2. COUMADIN [Concomitant]
  3. ASPIRIN [Concomitant]
  4. TOPROL-XL [Concomitant]
  5. EPLERENONE (EPLERENONE) [Concomitant]
  6. TORSEMIDE (TORSEMIDE) [Concomitant]
  7. K-DUR 10 [Concomitant]
  8. LANTUS [Concomitant]
  9. IMDUR [Concomitant]
  10. METHIMAZOLE [Concomitant]
  11. AMBIEN [Concomitant]
  12. REGULAR INSULIN [Concomitant]
  13. MAGNESIUM OXIDE (MAGNESIUM OXIDE) [Concomitant]
  14. OXYCODONE (OXYCODONE) [Concomitant]
  15. PROTONIX [Concomitant]
  16. ZAROXOLYN [Concomitant]
  17. ZETIA [Concomitant]

REACTIONS (5)
  - CONDITION AGGRAVATED [None]
  - HEPATIC ENCEPHALOPATHY [None]
  - HEPATIC FAILURE [None]
  - HEPATITIS [None]
  - SPLENORENAL SHUNT [None]
